FAERS Safety Report 9263683 (Version 3)
Quarter: 2013Q2

REPORT INFORMATION
  Report Type: Spontaneous
  Country: SE (occurrence: SE)
  Receive Date: 20130430
  Receipt Date: 20130529
  Transmission Date: 20140414
  Serious: Yes (Hospitalization)
  Sender: FDA-Public Use
  Company Number: SE-ASTRAZENECA-2013SE28869

PATIENT
  Age: 21550 Day
  Sex: Male

DRUGS (6)
  1. ATACAND [Suspect]
     Indication: ESSENTIAL HYPERTENSION
     Route: 048
     Dates: end: 20130415
  2. NEXIUM [Suspect]
     Indication: GASTRIC ULCER
     Route: 048
  3. CRESTOR [Concomitant]
     Route: 048
  4. TROMBYL [Concomitant]
  5. METOPROLOL [Concomitant]
  6. GLYTRIN [Concomitant]

REACTIONS (3)
  - Chest discomfort [Unknown]
  - Pharyngeal oedema [Recovered/Resolved]
  - Angioedema [Recovered/Resolved]
